FAERS Safety Report 12114155 (Version 1)
Quarter: 2016Q1

REPORT INFORMATION
  Report Type: Spontaneous
  Country: US (occurrence: US)
  Receive Date: 20160225
  Receipt Date: 20160225
  Transmission Date: 20160526
  Serious: Yes (Hospitalization, Other)
  Sender: FDA-Public Use
  Company Number: US-ASTRAZENECA-2016SE17701

PATIENT
  Age: 17640 Day
  Sex: Male
  Weight: 70.3 kg

DRUGS (3)
  1. MOVANTIK [Suspect]
     Active Substance: NALOXEGOL OXALATE
     Indication: CONSTIPATION
     Route: 048
     Dates: start: 20160216
  2. OXYCODONE [Concomitant]
     Active Substance: OXYCODONE
  3. METHADONE [Concomitant]
     Active Substance: METHADONE HYDROCHLORIDE

REACTIONS (5)
  - Retching [Unknown]
  - Diarrhoea [Unknown]
  - Abdominal pain [Unknown]
  - Tremor [Unknown]
  - Chills [Unknown]

NARRATIVE: CASE EVENT DATE: 20160216
